FAERS Safety Report 6676785-0 (Version None)
Quarter: 2010Q2

REPORT INFORMATION
  Report Type: 
  Country: None (occurrence: None)
  Receive Date: 20100412
  Receipt Date: 20100406
  Transmission Date: 20101027
  Serious: Yes (Other)
  Sender: FDA-Public Use
  Company Number: BR-ROCHE-693446

PATIENT
  Sex: Female
  Weight: 57 kg

DRUGS (1)
  1. CLONAZEPAM [Suspect]
     Indication: INSOMNIA
     Dosage: STOP DATE: 2010, 1 TABLET A DAY AT NIGHT
     Route: 048
     Dates: start: 20090101

REACTIONS (3)
  - FAECAL INCONTINENCE [None]
  - ILL-DEFINED DISORDER [None]
  - SENILE DEMENTIA [None]
